FAERS Safety Report 11537517 (Version 3)
Quarter: 2015Q4

REPORT INFORMATION
  Report Type: Spontaneous
  Country: JP (occurrence: JP)
  Receive Date: 20150922
  Receipt Date: 20151113
  Transmission Date: 20160304
  Serious: Yes (Life-Threatening, Hospitalization, Other)
  Sender: FDA-Public Use
  Company Number: JP-SHIRE-JP201511679

PATIENT
  Age: 65 Year
  Sex: Female

DRUGS (9)
  1. BIO-THREE [Concomitant]
     Active Substance: HERBALS
     Indication: DYSBACTERIOSIS
     Dosage: 3.0 G, UNKNOWN
     Route: 048
     Dates: start: 20030610, end: 20150907
  2. AMITIZA [Concomitant]
     Active Substance: LUBIPROSTONE
     Indication: CONSTIPATION
     Dosage: 48 MG, UNKNOWN
     Route: 048
     Dates: start: 20130812, end: 20150907
  3. LIPITOR [Concomitant]
     Active Substance: ATORVASTATIN CALCIUM
     Indication: BLOOD CHOLESTEROL ABNORMAL
     Dosage: 5 MG, UNKNOWN
     Route: 048
     Dates: start: 20120806, end: 20150907
  4. D-SORBITOL [Concomitant]
     Indication: CONSTIPATION
     Dosage: 7.5 G, UNKNOWN
     Route: 048
     Dates: start: 20120309, end: 20150907
  5. FOSRENOL [Suspect]
     Active Substance: LANTHANUM CARBONATE
     Indication: HYPERPHOSPHATAEMIA
     Dosage: 500 MG, UNKNOWN(DAY)
     Route: 048
     Dates: start: 20090601, end: 20150907
  6. SENNA [Concomitant]
     Active Substance: SENNA LEAF\SENNOSIDES\SENNOSIDES A AND B
     Indication: CONSTIPATION
     Dosage: 2.0 G, UNKNOWN
     Route: 048
     Dates: start: 19990412, end: 20150907
  7. PROMAC                             /01312301/ [Concomitant]
     Active Substance: NITROFURANTOIN
     Indication: EPISTAXIS
     Dosage: 75 MG, UNKNOWN
     Route: 048
     Dates: start: 20130823, end: 20150907
  8. PRECIPITATED CALCIUM CARBONATE [Concomitant]
     Active Substance: CALCIUM CARBONATE
     Indication: HYPERPHOSPHATAEMIA
     Dosage: 250 MG, UNKNOWN
     Route: 048
     Dates: start: 19990302, end: 20150907
  9. ZANTAC [Concomitant]
     Active Substance: RANITIDINE HYDROCHLORIDE
     Indication: GASTRITIS
     Dosage: 75 MG, UNKNOWN
     Route: 048
     Dates: start: 20051121, end: 20150907

REACTIONS (2)
  - Peritonitis [Recovered/Resolved]
  - Large intestine perforation [Recovered/Resolved]

NARRATIVE: CASE EVENT DATE: 20150907
